FAERS Safety Report 10909593 (Version 1)
Quarter: 2015Q1

REPORT INFORMATION
  Report Type: Spontaneous
  Country: US (occurrence: US)
  Receive Date: 20150312
  Receipt Date: 20150312
  Transmission Date: 20150721
  Serious: No
  Sender: FDA-Public Use
  Company Number: US-SA-2014SA061627

PATIENT
  Age: 62 Year
  Sex: Female
  Weight: 55 kg

DRUGS (2)
  1. NASACORT ALLERGY 24HR [Suspect]
     Active Substance: TRIAMCINOLONE ACETONIDE
     Indication: MULTIPLE ALLERGIES
     Dosage: DOSAGE 120 SPRAY, 2 SPRAYS PER NOSTRIL
     Route: 065
     Dates: start: 20140502, end: 20140506
  2. NASACORT ALLERGY 24HR [Suspect]
     Active Substance: TRIAMCINOLONE ACETONIDE
     Indication: NASAL INFLAMMATION
     Dosage: DOSAGE 120 SPRAY, 2 SPRAYS PER NOSTRIL
     Route: 065
     Dates: start: 20140502, end: 20140506

REACTIONS (1)
  - Face injury [Recovered/Resolved]

NARRATIVE: CASE EVENT DATE: 20140506
